FAERS Safety Report 13160002 (Version 1)
Quarter: 2017Q1

REPORT INFORMATION
  Report Type: Spontaneous
  Country: GR (occurrence: GR)
  Receive Date: 20170127
  Receipt Date: 20170127
  Transmission Date: 20170428
  Serious: Yes (Hospitalization)
  Sender: FDA-Public Use
  Company Number: GR-AKRIMAX-TIR-2017-0069

PATIENT
  Age: 67 Year
  Sex: Female

DRUGS (1)
  1. TIROSINT [Suspect]
     Active Substance: LEVOTHYROXINE SODIUM
     Indication: HYPOTHYROIDISM
     Dosage: 175MCG
     Route: 048

REACTIONS (3)
  - Hypothyroidism [Recovered/Resolved]
  - Organic brain syndrome [Recovered/Resolved]
  - Drug interaction [Recovered/Resolved]
